FAERS Safety Report 5146853-3 (Version None)
Quarter: 2006Q4

REPORT INFORMATION
  Report Type: 
  Country: None (occurrence: None)
  Receive Date: 20061107
  Receipt Date: 20061107
  Transmission Date: 20070319
  Serious: Yes (Life-Threatening)
  Sender: FDA-Public Use
  Company Number: None

PATIENT
  Age: 41 Year
  Sex: Female
  Weight: 59 kg

DRUGS (1)
  1. CIPROFLOXACIN [Suspect]
     Indication: URINARY TRACT INFECTION
     Dosage: 1 TABLET   ONCE  PO
     Route: 048
     Dates: start: 20061105, end: 20061105

REACTIONS (9)
  - DIZZINESS [None]
  - ERYTHEMA [None]
  - HYPERSENSITIVITY [None]
  - MUSCLE DISORDER [None]
  - PRURITUS [None]
  - RESPIRATORY DISORDER [None]
  - SWELLING FACE [None]
  - SYNCOPE [None]
  - VISUAL ACUITY REDUCED [None]
